FAERS Safety Report 9602774 (Version 1)
Quarter: 2013Q4

REPORT INFORMATION
  Report Type: Spontaneous
  Country: US (occurrence: US)
  Receive Date: 20131007
  Receipt Date: 20131007
  Transmission Date: 20140711
  Serious: Yes (Hospitalization)
  Sender: FDA-Public Use
  Company Number: US-BAYER-2013-119841

PATIENT
  Age: 46 Year
  Sex: Female

DRUGS (6)
  1. YASMIN [Suspect]
     Indication: MENORRHAGIA
  2. ZOLOFT [Concomitant]
     Dosage: 25 MG, UNK
  3. TORADOL [Concomitant]
  4. PHENERGAN [Concomitant]
  5. VICODIN [Concomitant]
  6. IRON SULFATE [Concomitant]

REACTIONS (1)
  - Pulmonary embolism [None]
